FAERS Safety Report 13143250 (Version 1)
Quarter: 2017Q1

REPORT INFORMATION
  Report Type: Spontaneous
  Country: JP (occurrence: JP)
  Receive Date: 20170124
  Receipt Date: 20170124
  Transmission Date: 20170428
  Serious: Yes (Hospitalization)
  Sender: FDA-Public Use
  Company Number: JP-GLAXOSMITHKLINE-JP2017JPN006227

PATIENT
  Age: 2 Year
  Weight: 13 kg

DRUGS (1)
  1. VALACICLOVIR HYDROCHLORIDE [Suspect]
     Active Substance: VALACYCLOVIR HYDROCHLORIDE
     Dosage: 325 MG, BID
     Route: 048

REACTIONS (5)
  - Oral mucosal blistering [Unknown]
  - Mouth swelling [Unknown]
  - Stomatitis [Recovering/Resolving]
  - Oral mucosal erythema [Recovering/Resolving]
  - Oral herpes [Recovering/Resolving]
